FAERS Safety Report 6203620-7 (Version None)
Quarter: 2009Q2

REPORT INFORMATION
  Report Type: 
  Country: None (occurrence: None)
  Receive Date: 20090527
  Receipt Date: 20090518
  Transmission Date: 20091009
  Serious: Yes (Hospitalization)
  Sender: FDA-Public Use
  Company Number: JP-ASTRAZENECA-2009AP03246

PATIENT
  Age: 49 Year
  Sex: Male

DRUGS (3)
  1. XYLOCAINE [Suspect]
     Dosage: DOSE UNKNOWN
     Route: 065
     Dates: start: 20090514, end: 20090514
  2. SOSEGON [Suspect]
     Dosage: DOSE UNKNOWN
     Route: 065
     Dates: start: 20090514, end: 20090514
  3. CEFAMEZIN [Suspect]
     Dosage: DOSE UNKNOWN
     Route: 065
     Dates: start: 20090514, end: 20090514

REACTIONS (2)
  - CONVULSION [None]
  - HYPERTHERMIA [None]
